FAERS Safety Report 19159840 (Version 1)
Quarter: 2021Q2

REPORT INFORMATION
  Report Type: Report from Study
  Country: CA (occurrence: CA)
  Receive Date: 20210420
  Receipt Date: 20210420
  Transmission Date: 20210717
  Serious: Yes (Other)
  Sender: FDA-Public Use
  Company Number: CA-ASTRAZENECA-2021A025788

PATIENT
  Age: 26666 Day
  Sex: Female

DRUGS (1)
  1. CALQUENCE [Suspect]
     Active Substance: ACALABRUTINIB
     Indication: CHRONIC LYMPHOCYTIC LEUKAEMIA
     Route: 048
     Dates: start: 20210111

REACTIONS (6)
  - Headache [Recovered/Resolved]
  - Vision blurred [Recovered/Resolved]
  - Uveitis [Recovered/Resolved]
  - Iris haemorrhage [Recovered/Resolved]
  - Dizziness [Recovering/Resolving]
  - Contusion [Unknown]

NARRATIVE: CASE EVENT DATE: 20210127
